FAERS Safety Report 16207026 (Version 2)
Quarter: 2019Q2

REPORT INFORMATION
  Report Type: Report from Study
  Country: IT (occurrence: IT)
  Receive Date: 20190417
  Receipt Date: 20190418
  Transmission Date: 20190711
  Serious: Yes (Life-Threatening)
  Sender: FDA-Public Use
  Company Number: IT-PFIZER INC-2019163430

PATIENT
  Age: 17 Year
  Sex: Female

DRUGS (7)
  1. SYNFLEX (NAPROXEN SODIUM) [Suspect]
     Active Substance: NAPROXEN SODIUM
     Indication: DRUG ABUSE
     Dosage: 5.5 G, SINGLE
     Route: 048
     Dates: start: 20190228, end: 20190228
  2. AYRINAL [Suspect]
     Active Substance: BILASTINE
     Indication: DRUG ABUSE
     Dosage: 20 MG, UNK
     Route: 048
     Dates: start: 20190228, end: 20190228
  3. PAFINUR [Suspect]
     Active Substance: RUPATADINE FUMARATE
     Indication: DRUG ABUSE
     Dosage: 20 MG, TOTAL
     Route: 048
     Dates: start: 20190228, end: 20190228
  4. XANAX [Suspect]
     Active Substance: ALPRAZOLAM
     Indication: DRUG ABUSE
     Dosage: 20 GTT, TOTAL
     Route: 048
     Dates: start: 20190228, end: 20190228
  5. SEACOR [Suspect]
     Active Substance: OMEGA-3 FATTY ACIDS
     Indication: DRUG ABUSE
     Dosage: 1000 MG, UNK
     Route: 048
     Dates: start: 20190228, end: 20190228
  6. BENTELAN [Suspect]
     Active Substance: BETAMETHASONE SODIUM PHOSPHATE
     Indication: DRUG ABUSE
     Dosage: 10 MG, TOTAL
     Route: 048
     Dates: start: 20190228, end: 20190228
  7. DAFLON [DIOSMIN] [Suspect]
     Active Substance: DIOSMIN
     Indication: DRUG ABUSE
     Dosage: 5 G, TOTAL
     Route: 048
     Dates: start: 20190228, end: 20190228

REACTIONS (3)
  - Substance abuse [Recovered/Resolved with Sequelae]
  - Toxicity to various agents [Recovered/Resolved with Sequelae]
  - Sopor [Recovered/Resolved with Sequelae]

NARRATIVE: CASE EVENT DATE: 20190228
